FAERS Safety Report 8180063-0 (Version None)
Quarter: 2012Q1

REPORT INFORMATION
  Report Type: 
  Country: None (occurrence: None)
  Receive Date: 20120302
  Receipt Date: 20120302
  Transmission Date: 20120608
  Serious: Yes (Hospitalization)
  Sender: FDA-Public Use
  Company Number: None

PATIENT
  Age: 9 Year
  Sex: Male
  Weight: 40.823 kg

DRUGS (1)
  1. BACTRIM DS- SULFAM/TMP (GENERIC) [Suspect]
     Indication: STAPHYLOCOCCAL INFECTION
     Dosage: 1 TABLET
     Route: 048
     Dates: start: 20120206, end: 20120212

REACTIONS (8)
  - RASH GENERALISED [None]
  - DRUG INTERACTION [None]
  - HEAD INJURY [None]
  - CONVULSION [None]
  - LIVER INJURY [None]
  - VIRAL INFECTION [None]
  - CONCUSSION [None]
  - SYNCOPE [None]
